FAERS Safety Report 5845904-8 (Version None)
Quarter: 2008Q3

REPORT INFORMATION
  Report Type: 
  Country: None (occurrence: None)
  Receive Date: 20080814
  Receipt Date: 20080807
  Transmission Date: 20090109
  Serious: Yes (Hospitalization)
  Sender: FDA-Public Use
  Company Number: US-ELI_LILLY_AND_COMPANY-US200808001536

PATIENT
  Sex: Male

DRUGS (2)
  1. HUMALOG [Suspect]
     Indication: DIABETES MELLITUS
     Dosage: 54 U, EACH MORNING
     Dates: start: 20040101
  2. HUMALOG [Suspect]
     Dosage: 15 U, EACH EVENING
     Dates: start: 20040101

REACTIONS (4)
  - PHARMACEUTICAL PRODUCT COMPLAINT [None]
  - SKIN GRAFT [None]
  - WOUND [None]
  - WOUND INFECTION [None]
